FAERS Safety Report 26093623 (Version 2)
Quarter: 2025Q4

REPORT INFORMATION
  Report Type: Report from Study
  Country: KR (occurrence: KR)
  Receive Date: 20251126
  Receipt Date: 20251215
  Transmission Date: 20260117
  Serious: Yes (Other)
  Sender: AMGEN
  Company Number: KR-AMGEN-KORNI2025231655

PATIENT
  Age: 70 Year
  Sex: Male

DRUGS (2)
  1. TARLATAMAB [Suspect]
     Active Substance: TARLATAMAB
     Indication: Small cell lung cancer
     Dosage: 1 MILLIGRAM, C1D1
     Route: 040
     Dates: start: 20250325
  2. TARLATAMAB [Suspect]
     Active Substance: TARLATAMAB
     Dosage: 10 MILLIGRAM, C1D8
     Route: 040
     Dates: start: 20251015

REACTIONS (1)
  - Small cell lung cancer [Unknown]
